FAERS Safety Report 20751604 (Version 1)
Quarter: 2022Q2

REPORT INFORMATION
  Report Type: Spontaneous
  Country: US (occurrence: US)
  Receive Date: 20220426
  Receipt Date: 20220426
  Transmission Date: 20220721
  Serious: No
  Sender: FDA-Public Use
  Company Number: US-PFIZER INC-202101109520

PATIENT
  Age: 54 Year
  Sex: Female

DRUGS (2)
  1. XELJANZ [Suspect]
     Active Substance: TOFACITINIB CITRATE
     Indication: Rheumatoid arthritis
     Dosage: 5 MG, 2X/DAY
     Route: 048
     Dates: start: 20210811
  2. COVID-19 VACCINE [Concomitant]
     Dosage: DOSE 3 (BOOSTER), SINGLE
     Dates: start: 20210821, end: 20210821

REACTIONS (8)
  - Condition aggravated [Unknown]
  - Feeling abnormal [Recovering/Resolving]
  - Memory impairment [Unknown]
  - Fatigue [Unknown]
  - Oral herpes [Unknown]
  - Dyspnoea [Unknown]
  - Dyspepsia [Unknown]
  - Gait disturbance [Unknown]

NARRATIVE: CASE EVENT DATE: 20210821
